FAERS Safety Report 23233273 (Version 1)
Quarter: 2023Q4

REPORT INFORMATION
  Report Type: Spontaneous
  Country: US (occurrence: US)
  Receive Date: 20231128
  Receipt Date: 20231128
  Transmission Date: 20240109
  Serious: No
  Sender: FDA-Public Use
  Company Number: US-WOCKHARDT BIO AG-2023WBA000067

PATIENT

DRUGS (3)
  1. NYSTATIN [Suspect]
     Active Substance: NYSTATIN
     Indication: Oral lichen planus
     Dosage: 1 PINT EVERY 3 WEEKS
     Route: 048
     Dates: start: 20230710
  2. NYSTATIN [Suspect]
     Active Substance: NYSTATIN
     Indication: Lip and/or oral cavity cancer
  3. NYSTATIN [Suspect]
     Active Substance: NYSTATIN
     Indication: Throat cancer

REACTIONS (2)
  - Alopecia [Unknown]
  - Product use in unapproved indication [Unknown]
